FAERS Safety Report 8541980-2 (Version None)
Quarter: 2012Q3

REPORT INFORMATION
  Report Type: 
  Country: None (occurrence: None)
  Receive Date: 20120726
  Receipt Date: 20111116
  Transmission Date: 20120928
  Serious: No
  Sender: FDA-Public Use
  Company Number: US-ASTRAZENECA-2011SE59413

PATIENT
  Age: 45 Year
  Sex: Female
  Weight: 72.6 kg

DRUGS (4)
  1. CLONOPIN [Concomitant]
     Indication: ANXIETY
  2. SEROQUEL XR [Suspect]
     Route: 048
  3. SEROQUEL XR [Suspect]
     Route: 048
  4. SEROQUEL XR [Suspect]
     Indication: BIPOLAR DISORDER
     Route: 048

REACTIONS (2)
  - IMPAIRED DRIVING ABILITY [None]
  - DRUG DOSE OMISSION [None]
